FAERS Safety Report 7190545-6 (Version None)
Quarter: 2010Q4

REPORT INFORMATION
  Report Type: 
  Country: None (occurrence: None)
  Receive Date: 20101221
  Receipt Date: 20101221
  Transmission Date: 20110411
  Serious: Yes (Hospitalization)
  Sender: FDA-Public Use
  Company Number: None

PATIENT
  Age: 81 Year
  Sex: Male
  Weight: 66.2252 kg

DRUGS (1)
  1. ENTEREG [Suspect]
     Indication: INTESTINAL RESECTION
     Dosage: 12MG BID PO
     Route: 048
     Dates: start: 20101214, end: 20101216

REACTIONS (1)
  - LIVER FUNCTION TEST ABNORMAL [None]
